FAERS Safety Report 7826035-4 (Version None)
Quarter: 2011Q4

REPORT INFORMATION
  Report Type: 
  Country: None (occurrence: None)
  Receive Date: 20111019
  Receipt Date: 20111014
  Transmission Date: 20120403
  Serious: Yes (Life-Threatening, Other)
  Sender: FDA-Public Use
  Company Number: US-ASTRAZENECA-2011SE54758

PATIENT
  Age: 65 Year
  Sex: Male

DRUGS (18)
  1. NITROGLYCERIN [Concomitant]
     Indication: CHEST PAIN
     Route: 060
  2. GABAPENTIN [Concomitant]
  3. MAGNESIUM [Concomitant]
  4. SYNTHROID [Concomitant]
  5. LYSINE HCL [Concomitant]
  6. LYRICA [Concomitant]
  7. JANUVIA [Concomitant]
  8. ZETIA [Concomitant]
  9. BENAZEPRIL HYDROCHLORIDE [Concomitant]
  10. LASIX [Concomitant]
  11. GLIPIZIDE [Concomitant]
  12. ISOSORBIDE DINITRATE [Concomitant]
  13. CRESTOR [Suspect]
     Route: 048
  14. ALLOPURINOL [Concomitant]
  15. CARVEDILOL [Concomitant]
  16. ASPIRIN [Concomitant]
  17. PLAVIX [Concomitant]
  18. COQ10 [Concomitant]

REACTIONS (6)
  - ILL-DEFINED DISORDER [None]
  - ACCIDENT [None]
  - CARDIAC ARREST [None]
  - ATRIOVENTRICULAR BLOCK [None]
  - DIABETES MELLITUS [None]
  - UPPER LIMB FRACTURE [None]
